FAERS Safety Report 23551945 (Version 1)
Quarter: 2024Q1

REPORT INFORMATION
  Report Type: Report from Study
  Country: US (occurrence: US)
  Receive Date: 20240222
  Receipt Date: 20240222
  Transmission Date: 20240409
  Serious: Yes (Other)
  Sender: FDA-Public Use
  Company Number: US-ZENPEP LLC-2024AIMT00088

PATIENT

DRUGS (2)
  1. ZENPEP [Suspect]
     Active Substance: PANCRELIPASE AMYLASE\PANCRELIPASE LIPASE\PANCRELIPASE PROTEASE
     Indication: Pancreatic failure
     Dosage: 40 000 USP UNIT CAPSULE BOTTLE 100
     Route: 048
  2. ZENPEP [Suspect]
     Active Substance: PANCRELIPASE AMYLASE\PANCRELIPASE LIPASE\PANCRELIPASE PROTEASE
     Dosage: 40 000 USP UNIT CAPSULE BOTTLE 100, ONCE, PRIOR THE ONSET OF THE EVENTS
     Route: 048

REACTIONS (4)
  - Impaired gastric emptying [Unknown]
  - Dysphagia [Unknown]
  - Vomiting [Unknown]
  - Product use complaint [Unknown]
